FAERS Safety Report 25128207 (Version 1)
Quarter: 2025Q1

REPORT INFORMATION
  Report Type: Report from Study
  Country: US (occurrence: US)
  Receive Date: 20250327
  Receipt Date: 20250327
  Transmission Date: 20250409
  Serious: Yes (Congenital Anomaly, Other)
  Sender: GILEAD
  Company Number: US-GILEAD-2025-0708454

PATIENT
  Sex: Male
  Weight: 2.03 kg

DRUGS (1)
  1. BICTEGRAVIR\EMTRICITABINE\TENOFOVIR ALAFENAMIDE [Suspect]
     Active Substance: BICTEGRAVIR\EMTRICITABINE\TENOFOVIR ALAFENAMIDE
     Indication: HIV infection
     Dosage: 1 DOSAGE FORM, QD
     Route: 064

REACTIONS (5)
  - Cleft palate [Unknown]
  - Fallot^s tetralogy [Unknown]
  - Congenital diaphragmatic eventration [Unknown]
  - Micrognathia [Unknown]
  - Foetal exposure during pregnancy [Recovered/Resolved]
